FAERS Safety Report 18551293 (Version 4)
Quarter: 2023Q4

REPORT INFORMATION
  Report Type: Report from Study
  Country: US (occurrence: US)
  Receive Date: 20201126
  Receipt Date: 20231020
  Transmission Date: 20240110
  Serious: Yes (Death, Hospitalization)
  Sender: FDA-Public Use
  Company Number: US-SA-2020SA341226

PATIENT
  Age: 62 Year
  Sex: Male

DRUGS (24)
  1. DKN-01 [Suspect]
     Active Substance: DKN-01
     Indication: Oesophageal adenocarcinoma
     Dosage: 300 MG
     Route: 065
     Dates: start: 20201105, end: 20201105
  2. DKN-01 [Suspect]
     Active Substance: DKN-01
     Dosage: 300 MG, Q3W (DAY 1, 15 IN Q21D)
     Route: 042
     Dates: start: 20201015, end: 20201015
  3. TISLELIZUMAB [Suspect]
     Active Substance: TISLELIZUMAB
     Indication: Oesophageal adenocarcinoma
     Dosage: 200 MG
     Route: 065
     Dates: start: 20201105, end: 20201105
  4. TISLELIZUMAB [Suspect]
     Active Substance: TISLELIZUMAB
     Dosage: 200 MG, Q3W (DAY 1 Q21D)
     Route: 042
     Dates: start: 20201015, end: 20201015
  5. TISLELIZUMAB [Suspect]
     Active Substance: TISLELIZUMAB
     Dosage: 200 MG, Q3W (DAY 1 Q21D)
     Route: 042
     Dates: start: 20201016
  6. OXALIPLATIN [Suspect]
     Active Substance: OXALIPLATIN
     Indication: Oesophageal adenocarcinoma
     Dosage: 130 MG/M2, Q3W (DAY 1 Q21D)
     Route: 042
     Dates: start: 20201015, end: 20201015
  7. OXALIPLATIN [Suspect]
     Active Substance: OXALIPLATIN
     Dosage: 250 MG, Q12D
     Route: 042
     Dates: start: 20201016
  8. OXALIPLATIN [Suspect]
     Active Substance: OXALIPLATIN
     Dosage: 300 MG
     Route: 065
     Dates: start: 20201105, end: 20201105
  9. CAPECITABINE [Suspect]
     Active Substance: CAPECITABINE
     Indication: Oesophageal adenocarcinoma
     Dosage: 2250 MG
     Route: 065
     Dates: start: 20201117, end: 20201117
  10. CAPECITABINE [Suspect]
     Active Substance: CAPECITABINE
     Dosage: 10000 MG/M2, BID (DAYS 1-15, Q21D)
     Route: 048
     Dates: start: 20201015, end: 20201015
  11. CAPECITABINE [Suspect]
     Active Substance: CAPECITABINE
     Dosage: 1000 MG/M2, BID
     Route: 048
     Dates: start: 20201016, end: 20201016
  12. CAPECITABINE [Suspect]
     Active Substance: CAPECITABINE
     Dosage: 3900 MG, Q12D
     Route: 048
     Dates: start: 20201022, end: 20201022
  13. LORAZEPAM [Concomitant]
     Active Substance: LORAZEPAM
     Dosage: UNK
     Route: 065
     Dates: start: 20201116, end: 20201117
  14. ONDANSETRON [Concomitant]
     Active Substance: ONDANSETRON
     Dosage: UNK
     Route: 065
     Dates: start: 20201009, end: 20201117
  15. COMPAZINE [Concomitant]
     Active Substance: PROCHLORPERAZINE MALEATE
     Dosage: UNK
     Route: 065
     Dates: start: 20201105, end: 20201117
  16. OLANZAPINE [Concomitant]
     Active Substance: OLANZAPINE
     Dosage: UNK
     Route: 065
     Dates: start: 20201116, end: 20201117
  17. SUCRALFATE [Concomitant]
     Active Substance: SUCRALFATE
     Dosage: UNK
     Route: 065
     Dates: start: 20201029, end: 20201117
  18. ESOMEPRAZOLE [Concomitant]
     Active Substance: ESOMEPRAZOLE
     Dosage: UNK
     Route: 065
     Dates: start: 20201105, end: 20201117
  19. TYLENOL [Concomitant]
     Active Substance: ACETAMINOPHEN
     Dosage: UNK
     Dates: start: 20201015, end: 20201117
  20. CALCIUM CARBONATE\MAGNESIUM CARBONATE [Concomitant]
     Active Substance: CALCIUM CARBONATE\MAGNESIUM CARBONATE
     Dosage: UNK
     Dates: start: 20201016, end: 20201117
  21. FOSAPREPITANT [Concomitant]
     Active Substance: FOSAPREPITANT
     Route: 042
  22. PROPOFOL [Concomitant]
     Active Substance: PROPOFOL
     Dosage: CONTINUOUS 224.1 MG IV PROPOFOL INFUSION, QD
     Route: 042
  23. LIDOCAINE HYDROCHLORIDE [Concomitant]
     Active Substance: LIDOCAINE HYDROCHLORIDE
     Route: 042
  24. ENOXAPARIN [Concomitant]
     Active Substance: ENOXAPARIN

REACTIONS (2)
  - Pulmonary embolism [Fatal]
  - Vomiting [Recovered/Resolved]

NARRATIVE: CASE EVENT DATE: 20201017
